FAERS Safety Report 22327781 (Version 2)
Quarter: 2024Q2

REPORT INFORMATION
  Report Type: Spontaneous
  Country: US (occurrence: US)
  Receive Date: 20230516
  Receipt Date: 20240531
  Transmission Date: 20240716
  Serious: No
  Sender: FDA-Public Use
  Company Number: US-RADIUS HEALTH INC.-2023US001314

PATIENT
  Age: 60 Year
  Sex: Female

DRUGS (2)
  1. TYMLOS [Suspect]
     Active Substance: ABALOPARATIDE
     Indication: Osteoporosis
     Dosage: 80 MICROGRAM, QD
     Route: 058
     Dates: start: 20220421
  2. KEVZARA [Concomitant]
     Active Substance: SARILUMAB
     Indication: Product used for unknown indication

REACTIONS (2)
  - Product dose omission in error [Unknown]
  - Heart rate increased [Unknown]

NARRATIVE: CASE EVENT DATE: 20230401
